FAERS Safety Report 6753455-1 (Version None)
Quarter: 2010Q2

REPORT INFORMATION
  Report Type: 
  Country: None (occurrence: None)
  Receive Date: 20100603
  Receipt Date: 20100524
  Transmission Date: 20101027
  Serious: Yes (Other)
  Sender: FDA-Public Use
  Company Number: PT-PFIZER INC-2010058448

PATIENT
  Age: 77 Year
  Sex: Female

DRUGS (8)
  1. XALATAN [Suspect]
     Indication: CATARACT
     Dosage: 1.5UG IN EACH EYE, 1X/DAY
     Route: 047
     Dates: start: 20091001
  2. XALATAN [Suspect]
     Indication: OCULAR HYPERTENSION
  3. INDERAL [Suspect]
     Indication: PALPITATIONS
     Dosage: 60 MG, 1X/DAY
     Route: 048
     Dates: start: 20100201
  4. VASTAREL [Concomitant]
     Dosage: UNK
  5. XANAX [Concomitant]
     Indication: ANXIETY
     Dosage: 0.25 MG, 2X/DAY
     Route: 048
  6. XANAX [Concomitant]
     Indication: DEPRESSION
  7. BETASERC [Concomitant]
     Indication: DIZZINESS
     Dosage: 24 MG, 1X/DAY
     Route: 048
     Dates: start: 20100201
  8. BETASERC [Concomitant]
     Indication: VERTIGO

REACTIONS (2)
  - OEDEMA PERIPHERAL [None]
  - PALPITATIONS [None]
